FAERS Safety Report 8922597 (Version 5)
Quarter: 2014Q4

REPORT INFORMATION
  Report Type: Spontaneous
  Country: US (occurrence: US)
  Receive Date: 20121125
  Receipt Date: 20141124
  Transmission Date: 20150529
  Serious: Yes (Hospitalization, Disabling, Other)
  Sender: FDA-Public Use
  Company Number: US-ASTRAZENECA-2012SE86374

PATIENT
  Age: 38 Year
  Sex: Female
  Weight: 49.9 kg

DRUGS (31)
  1. HYDRODIURIL [Concomitant]
     Active Substance: HYDROCHLOROTHIAZIDE
  2. IBUPROFEN. [Concomitant]
     Active Substance: IBUPROFEN
     Indication: PAIN
  3. NEXIUM [Suspect]
     Active Substance: ESOMEPRAZOLE MAGNESIUM
     Indication: GASTROOESOPHAGEAL REFLUX DISEASE
     Route: 048
     Dates: start: 1995, end: 2010
  4. NEXIUM [Suspect]
     Active Substance: ESOMEPRAZOLE MAGNESIUM
     Indication: GASTROOESOPHAGEAL REFLUX DISEASE
     Dosage: 20 MG AND 30 MG DAY
     Route: 048
     Dates: start: 2000, end: 2003
  5. NEXIUM [Suspect]
     Active Substance: ESOMEPRAZOLE MAGNESIUM
     Indication: GASTROOESOPHAGEAL REFLUX DISEASE
     Route: 048
     Dates: start: 200406, end: 201103
  6. PRILOSEC OTC [Suspect]
     Active Substance: OMEPRAZOLE MAGNESIUM
     Route: 048
  7. PROMETHAZINE [Concomitant]
     Active Substance: PROMETHAZINE\PROMETHAZINE HYDROCHLORIDE
  8. ZANTAC [Concomitant]
     Active Substance: RANITIDINE HYDROCHLORIDE
     Indication: GASTROOESOPHAGEAL REFLUX DISEASE
     Dates: start: 1997, end: 1998
  9. PRAVACHOL [Concomitant]
     Active Substance: PRAVASTATIN SODIUM
  10. NAPROXEN. [Concomitant]
     Active Substance: NAPROXEN
     Dates: start: 20060927
  11. PRILOSEC [Suspect]
     Active Substance: OMEPRAZOLE MAGNESIUM
     Route: 048
     Dates: start: 2011
  12. ACIPHEX [Concomitant]
     Active Substance: RABEPRAZOLE SODIUM
     Indication: GASTROOESOPHAGEAL REFLUX DISEASE
     Dates: start: 2012
  13. TRAZODONE [Concomitant]
     Active Substance: TRAZODONE HYDROCHLORIDE
     Dates: start: 20110324
  14. KLONOPIN [Concomitant]
     Active Substance: CLONAZEPAM
     Dates: start: 20110324
  15. KLONOPIN [Concomitant]
     Active Substance: CLONAZEPAM
  16. ACIPHEX [Concomitant]
     Active Substance: RABEPRAZOLE SODIUM
     Indication: GASTROOESOPHAGEAL REFLUX DISEASE
  17. METHYLPREDNISOLONE. [Concomitant]
     Active Substance: METHYLPREDNISOLONE
     Dates: start: 20061024
  18. SIMVASTATIN. [Concomitant]
     Active Substance: SIMVASTATIN
     Dates: start: 20090108
  19. LEXAPRO [Concomitant]
     Active Substance: ESCITALOPRAM OXALATE
     Dosage: TWO TIMES  DAY
  20. LEXAPRO [Concomitant]
     Active Substance: ESCITALOPRAM OXALATE
     Dates: start: 20110324
  21. XANAX [Concomitant]
     Active Substance: ALPRAZOLAM
     Indication: PANIC ATTACK
  22. METRONIDAZOLE. [Concomitant]
     Active Substance: METRONIDAZOLE
     Dates: start: 20040711
  23. BIAXIN [Concomitant]
     Active Substance: CLARITHROMYCIN
     Dates: start: 20040727
  24. INDOMETHACIN. [Concomitant]
     Active Substance: INDOMETHACIN
     Dates: start: 20090610
  25. NEXIUM [Suspect]
     Active Substance: ESOMEPRAZOLE MAGNESIUM
     Indication: GASTROOESOPHAGEAL REFLUX DISEASE
     Route: 048
     Dates: start: 20040625
  26. HYOSCYAMINE [Concomitant]
     Active Substance: HYOSCYAMINE
     Dates: start: 20051006
  27. DOXEPIN [Concomitant]
     Active Substance: DOXEPIN
     Dates: start: 20090613
  28. HYDROCODONE [Concomitant]
     Active Substance: HYDROCODONE
     Dates: start: 20110324
  29. METOCLOPRAMIDE. [Concomitant]
     Active Substance: METOCLOPRAMIDE
     Dates: start: 20061003
  30. BUPROPION SR [Concomitant]
     Active Substance: BUPROPION
     Dates: start: 20070216
  31. TEMAZEPAM. [Concomitant]
     Active Substance: TEMAZEPAM
     Dates: start: 20070507

REACTIONS (19)
  - Suicide attempt [Unknown]
  - Osteoporosis [Unknown]
  - Bone disorder [Unknown]
  - Limb injury [Unknown]
  - Chronic obstructive pulmonary disease [Unknown]
  - Injury [Unknown]
  - Arthritis [Unknown]
  - Foot fracture [Unknown]
  - Post-traumatic stress disorder [Unknown]
  - Mental disorder [Unknown]
  - Bipolar II disorder [Unknown]
  - Depression [Unknown]
  - Upper limb fracture [Unknown]
  - Radius fracture [Unknown]
  - Multiple fractures [Unknown]
  - Road traffic accident [Unknown]
  - Gastric disorder [Unknown]
  - Fall [Unknown]
  - Gastric infection [Unknown]

NARRATIVE: CASE EVENT DATE: 2003
